FAERS Safety Report 16842587 (Version 1)
Quarter: 2019Q3

REPORT INFORMATION
  Report Type: Spontaneous
  Country: US (occurrence: US)
  Receive Date: 20190924
  Receipt Date: 20190924
  Transmission Date: 20191005
  Serious: Yes (Hospitalization)
  Sender: FDA-Public Use
  Company Number: US-JNJFOC-20190914149

PATIENT
  Age: 65 Year
  Sex: Male
  Weight: 70.37 kg

DRUGS (1)
  1. ZYRTEC [Suspect]
     Active Substance: CETIRIZINE HYDROCHLORIDE
     Indication: URTICARIA
     Dosage: 1 TABLET ONCE A DAY, AT NIGHT
     Route: 048
     Dates: start: 20190905, end: 20190909

REACTIONS (4)
  - Product use in unapproved indication [Unknown]
  - Urticaria [Recovered/Resolved]
  - Off label use [Unknown]
  - Therapeutic response unexpected [Unknown]

NARRATIVE: CASE EVENT DATE: 201909
